FAERS Safety Report 5823864-3 (Version None)
Quarter: 2008Q3

REPORT INFORMATION
  Report Type: 
  Country: None (occurrence: None)
  Receive Date: 20080725
  Receipt Date: 20080714
  Transmission Date: 20090109
  Serious: Yes (Other)
  Sender: FDA-Public Use
  Company Number: US-PFIZER INC-2008061506

PATIENT
  Sex: Female

DRUGS (2)
  1. CHANTIX [Suspect]
  2. ZOLPIDEM TARTRATE [Concomitant]

REACTIONS (4)
  - ABNORMAL BEHAVIOUR [None]
  - CRYING [None]
  - ROAD TRAFFIC ACCIDENT [None]
  - TRICHOTILLOMANIA [None]
